FAERS Safety Report 5015631-8 (Version None)
Quarter: 2006Q2

REPORT INFORMATION
  Report Type: 
  Country: None (occurrence: None)
  Receive Date: 20060601
  Receipt Date: 20060221
  Transmission Date: 20061013
  Serious: Yes (Death, Other)
  Sender: FDA-Public Use
  Company Number: JP-SANOFI-SYNTHELABO-F01200600499

PATIENT
  Sex: Male
  Weight: 50 kg

DRUGS (3)
  1. CALCIUM LEVOFOLINATE [Suspect]
     Indication: COLON CANCER
     Dosage: 150MG/BODY=100.7MG/M2 AS INFUSION ON DAYS 1 AND 2
     Route: 042
     Dates: start: 20051124, end: 20051125
  2. FLUOROURACIL [Suspect]
     Indication: COLON CANCER
     Dosage: 500MG/BODY=335.6MG/M2 IN BOLUS THEN 1000MG/BODY=671.1MG/M2 AS CONTINUOUS INFUSION ON DAYS 1 AND 2
     Route: 042
     Dates: start: 20051124, end: 20051125
  3. OXALIPLATIN [Suspect]
     Indication: COLON CANCER
     Dosage: 100MG/BODY=67.1MG/M2 IN INFUSION ON DAY 1
     Route: 042
     Dates: start: 20051124, end: 20051124

REACTIONS (6)
  - BLOOD CREATININE INCREASED [None]
  - HAEMOGLOBIN DECREASED [None]
  - LEUKOPENIA [None]
  - NEUTROPENIA [None]
  - URINARY TRACT INFECTION [None]
  - UROSEPSIS [None]
